FAERS Safety Report 12170016 (Version 2)
Quarter: 2016Q1

REPORT INFORMATION
  Report Type: Spontaneous
  Country: DE (occurrence: DE)
  Receive Date: 20160310
  Receipt Date: 20160312
  Transmission Date: 20160526
  Serious: Yes (Other)
  Sender: FDA-Public Use
  Company Number: DE-JNJFOC-20160227036

PATIENT
  Sex: Male

DRUGS (2)
  1. REGAINE MAENNER [Suspect]
     Active Substance: MINOXIDIL
     Indication: PRODUCT USED FOR UNKNOWN INDICATION
     Dosage: DOSE: 1 ML PER APPLICATION SITE TWICE DAILY (2 APPLICATION SITES ON SCALP)
     Route: 061
     Dates: start: 201602, end: 20160220
  2. REGAINE MAENNER [Suspect]
     Active Substance: MINOXIDIL
     Route: 061

REACTIONS (2)
  - Overdose [Not Recovered/Not Resolved]
  - Visual impairment [Not Recovered/Not Resolved]

NARRATIVE: CASE EVENT DATE: 201602
